FAERS Safety Report 7557753-3 (Version None)
Quarter: 2011Q2

REPORT INFORMATION
  Report Type: 
  Country: None (occurrence: None)
  Receive Date: 20110620
  Receipt Date: 20110613
  Transmission Date: 20111010
  Serious: Yes (Death, Hospitalization)
  Sender: FDA-Public Use
  Company Number: US-MERCK-1105USA03585

PATIENT
  Age: 19 Year
  Sex: Male

DRUGS (2)
  1. AMLODIPINE [Suspect]
     Route: 048
  2. PRINIVIL [Suspect]
     Route: 048

REACTIONS (3)
  - OVERDOSE [None]
  - COMPLETED SUICIDE [None]
  - HYPOTENSION [None]
